FAERS Safety Report 6428536-2 (Version None)
Quarter: 2009Q4

REPORT INFORMATION
  Report Type: 
  Country: None (occurrence: None)
  Receive Date: 20091105
  Receipt Date: 20091103
  Transmission Date: 20100525
  Serious: Yes (Hospitalization)
  Sender: FDA-Public Use
  Company Number: BR-BAYER-200935709GPV

PATIENT
  Age: 52 Year
  Sex: Female

DRUGS (15)
  1. CIFLOX [Suspect]
     Indication: BILE DUCT STONE
     Route: 042
     Dates: start: 20090904, end: 20090909
  2. CIFLOX [Suspect]
     Dosage: TOTAL DAILY DOSE: 1000 MG  UNIT DOSE: 500 MG
     Route: 042
     Dates: start: 20090915, end: 20090921
  3. VIRAFERONPEG [Suspect]
     Indication: DRUG USE FOR UNKNOWN INDICATION
     Dosage: TOTAL DAILY DOSE: 12.8571 ?G
     Route: 058
     Dates: start: 20080101, end: 20090904
  4. CELLCEPT [Concomitant]
     Indication: DRUG USE FOR UNKNOWN INDICATION
     Route: 065
  5. NEORAL [Concomitant]
     Indication: DRUG USE FOR UNKNOWN INDICATION
     Route: 065
  6. REBETOL [Concomitant]
     Indication: DRUG USE FOR UNKNOWN INDICATION
     Route: 065
     Dates: end: 20090910
  7. EFFEXOR [Concomitant]
     Route: 065
  8. NOCTRAN [Concomitant]
     Indication: DRUG USE FOR UNKNOWN INDICATION
     Route: 065
     Dates: end: 20090910
  9. PRIMPERAN [Concomitant]
     Indication: DRUG USE FOR UNKNOWN INDICATION
     Route: 065
  10. DELURSAN [Concomitant]
     Indication: DRUG USE FOR UNKNOWN INDICATION
     Route: 065
  11. MYFORTIC [Concomitant]
     Indication: DRUG USE FOR UNKNOWN INDICATION
     Route: 065
  12. TAZOCILLINE [Concomitant]
     Indication: BILE DUCT STONE
     Route: 065
     Dates: start: 20090901
  13. FLAGYL [Concomitant]
     Indication: BILE DUCT STONE
     Route: 065
     Dates: start: 20090901
  14. CONTRAMAL [Concomitant]
     Indication: BILE DUCT STONE
     Route: 065
     Dates: start: 20090901
  15. MORPHINE [Concomitant]
     Indication: BILE DUCT STONE
     Route: 065
     Dates: start: 20090901

REACTIONS (2)
  - DELIRIUM [None]
  - HALLUCINATION [None]
